FAERS Safety Report 9255272 (Version 1)
Quarter: 2013Q1

REPORT INFORMATION
  Report Type: Spontaneous
  Country: US (occurrence: None)
  Receive Date: 20121212
  Receipt Date: 20121212
  Transmission Date: 20140127
  Serious: No
  Sender: FDA-Public Use
  Company Number: 1209USA010810

PATIENT
  Age: 63 Year
  Sex: Female

DRUGS (3)
  1. VICTRELIS [Suspect]
     Indication: HEPATITIS C
     Dosage: UNK, ORAL
     Dates: start: 20120910
  2. REBETOL [Suspect]
     Indication: HEPATITIS C
     Dates: start: 20120910
  3. PEGASYS [Suspect]
     Indication: HEPATITIS C
     Dosage: UNK
     Dates: start: 20120910

REACTIONS (12)
  - Polyuria [None]
  - Somnolence [None]
  - Abdominal pain [None]
  - Nocturia [None]
  - Feeling cold [None]
  - Nocturia [None]
  - Cough [None]
  - Headache [None]
  - Haemoglobin decreased [None]
  - Fatigue [None]
  - Insomnia [None]
  - Initial insomnia [None]
